FAERS Safety Report 6211263-4 (Version None)
Quarter: 2009Q2

REPORT INFORMATION
  Report Type: 
  Country: None (occurrence: None)
  Receive Date: 20090528
  Receipt Date: 20090513
  Transmission Date: 20091009
  Serious: Yes (Life-Threatening, Hospitalization)
  Sender: FDA-Public Use
  Company Number: 2009S1008582

PATIENT
  Age: 51 Year
  Sex: Female
  Weight: 92 kg

DRUGS (16)
  1. TORSEMIDE [Suspect]
     Indication: CARDIAC FAILURE
     Dosage: ;TWICE A DAY; ORAL
     Route: 048
     Dates: start: 20080701, end: 20080903
  2. AQUAPHOR TABLET (NO PREF. NAME) (20 MG) [Suspect]
     Indication: CARDIAC FAILURE
     Dosage: 20 MG; 1_NULL_DAY; ORAL
     Route: 048
     Dates: start: 20080301, end: 20080903
  3. AQUAPHOR TABLET (NO PREF. NAME) (20 MG) [Suspect]
     Indication: CARDIAC FAILURE
     Dosage: 20 MG; 1_NULL_DAY; ORAL
     Route: 048
     Dates: start: 20080912
  4. SALBUTAMOL (SALBUTAMOL) (100 UG) [Suspect]
     Indication: ASTHMA
     Dosage: 100 UG;UNKNOWN; INHALATION
     Route: 055
     Dates: start: 20080201
  5. PREDNISOLON (PREDNISOLONE) (30 MG) [Suspect]
     Indication: HYPEREOSINOPHILIC SYNDROME
     Dosage: 30 MG;1_NULL_DAY; ORAL 15 MG;
     Route: 048
     Dates: start: 20080301
  6. AERIUS [Concomitant]
  7. ASPIRIN [Concomitant]
  8. FALITHROM [Concomitant]
  9. PANTOZOL [Concomitant]
  10. BISOPROLOL [Concomitant]
  11. ALDACTONE [Concomitant]
  12. ROCALTROL [Concomitant]
  13. CALCILAC KT [Concomitant]
  14. MAGNESIUM SULFATE [Concomitant]
  15. SYMBICORT [Concomitant]
  16. FLUTICASONE PROPIONATE W/SALMETEROL XINAFOATE [Concomitant]

REACTIONS (4)
  - BLOOD POTASSIUM DECREASED [None]
  - BLOOD SODIUM DECREASED [None]
  - DRUG INTERACTION [None]
  - METABOLIC ALKALOSIS [None]
